FAERS Safety Report 7221821-6 (Version None)
Quarter: 2011Q1

REPORT INFORMATION
  Report Type: 
  Country: None (occurrence: None)
  Receive Date: 20110112
  Receipt Date: 20101222
  Transmission Date: 20110831
  Serious: Yes (Hospitalization)
  Sender: FDA-Public Use
  Company Number: A0753973A

PATIENT
  Age: 39 Year
  Sex: Male
  Weight: 100 kg

DRUGS (4)
  1. GLUCOPHAGE [Concomitant]
  2. METFORMIN [Concomitant]
  3. AVANDIA [Suspect]
     Dosage: 8MG PER DAY
     Route: 048
     Dates: start: 20040524
  4. GLUCOTROL [Concomitant]

REACTIONS (2)
  - MYOCARDIAL INFARCTION [None]
  - CARDIAC FAILURE CONGESTIVE [None]
